FAERS Safety Report 18370893 (Version 2)
Quarter: 2020Q4

REPORT INFORMATION
  Report Type: Spontaneous
  Country: DE (occurrence: DE)
  Receive Date: 20201012
  Receipt Date: 20201021
  Transmission Date: 20210114
  Serious: Yes (Other)
  Sender: FDA-Public Use
  Company Number: DE-TORRENT-00018680

PATIENT
  Age: 26 Year
  Sex: Male
  Weight: 78 kg

DRUGS (1)
  1. ESCITALOPRAM HEUMANN 10 MG FILMTABLETTEN [Suspect]
     Active Substance: ESCITALOPRAM OXALATE
     Indication: BURNOUT SYNDROME
     Dosage: 1 TABLET IN THE MORNING (1-0-0)
     Route: 048

REACTIONS (4)
  - Hyperhidrosis [Recovered/Resolved]
  - Faeces soft [Not Recovered/Not Resolved]
  - Erectile dysfunction [Unknown]
  - Diarrhoea [Not Recovered/Not Resolved]
